FAERS Safety Report 15200102 (Version 1)
Quarter: 2018Q3

REPORT INFORMATION
  Report Type: Spontaneous
  Country: DK (occurrence: DK)
  Receive Date: 20180726
  Receipt Date: 20180726
  Transmission Date: 20181010
  Serious: Yes (Hospitalization)
  Sender: FDA-Public Use
  Company Number: DK-TEVA-2018-DK-929184

PATIENT
  Age: 64 Year
  Sex: Female

DRUGS (3)
  1. ZOLEDRONIC ACID [Suspect]
     Active Substance: ZOLEDRONIC ACID
     Indication: BREAST CANCER
     Dosage: 3. THE DOSE WAS ADMINISTERED IN EARLY OCTOBER 2017.
     Route: 042
     Dates: start: 201610
  2. FEMAR [Concomitant]
     Active Substance: LETROZOLE
     Indication: BREAST CANCER
     Route: 048
     Dates: start: 2015
  3. SIMVASTATIN ^KRKA^ [Concomitant]
     Indication: HYPERCHOLESTEROLAEMIA
     Dosage: 40 MILLIGRAM DAILY;
     Route: 048

REACTIONS (7)
  - Alanine aminotransferase increased [Recovered/Resolved]
  - Back pain [Recovered/Resolved]
  - Cholestasis [Recovered/Resolved]
  - Cholelithiasis [Recovered/Resolved]
  - Amylase increased [Recovered/Resolved]
  - Biliary dilatation [Recovered/Resolved]
  - Papilla of Vater stenosis [Recovered/Resolved]

NARRATIVE: CASE EVENT DATE: 201706
